FAERS Safety Report 5570315-2 (Version None)
Quarter: 2007Q4

REPORT INFORMATION
  Report Type: 
  Country: None (occurrence: None)
  Receive Date: 20071219
  Receipt Date: 20071219
  Transmission Date: 20080405
  Serious: Yes (Life-Threatening, Hospitalization)
  Sender: FDA-Public Use
  Company Number: None

PATIENT
  Age: 75 Year
  Sex: Male
  Weight: 68 kg

DRUGS (1)
  1. MOXIFLOXACIN HCL [Suspect]
     Indication: SINUSITIS
     Dosage: 400MG DAILY PO
     Route: 048
     Dates: start: 20071206, end: 20071213

REACTIONS (4)
  - CONFUSIONAL STATE [None]
  - HYPERGLYCAEMIA [None]
  - HYPOGLYCAEMIA [None]
  - LOSS OF CONSCIOUSNESS [None]
